FAERS Safety Report 23686681 (Version 4)
Quarter: 2024Q2

REPORT INFORMATION
  Report Type: Report from Study
  Country: SV (occurrence: SV)
  Receive Date: 20240329
  Receipt Date: 20240522
  Transmission Date: 20240715
  Serious: Yes (Hospitalization, Other)
  Sender: FDA-Public Use
  Company Number: SV-AMGEN-SLVSL2024061124

PATIENT
  Age: 38 Year
  Sex: Female

DRUGS (22)
  1. PROLIA [Suspect]
     Active Substance: DENOSUMAB
     Indication: Metastases to bone
     Dosage: 60 MILLIGRAM, Q4WK
     Route: 058
     Dates: start: 201908, end: 202004
  2. PROLIA [Suspect]
     Active Substance: DENOSUMAB
     Dosage: 60 MILLIGRAM, Q4WK
     Route: 058
     Dates: start: 202008
  3. VERZENIO [Suspect]
     Active Substance: ABEMACICLIB
     Indication: Breast cancer
     Dosage: 150 MILLIGRAM, Q12H
     Route: 048
     Dates: start: 20240106, end: 20240127
  4. VERZENIO [Suspect]
     Active Substance: ABEMACICLIB
     Dosage: 150 MILLIGRAM, Q12H
     Route: 048
     Dates: start: 20240203
  5. ABRAXANE [Suspect]
     Active Substance: PACLITAXEL
     Indication: Breast cancer metastatic
     Dosage: 1 CYCLE EVERY 21 DAYS
     Route: 065
     Dates: start: 20230908, end: 20231222
  6. METFORMIN [Concomitant]
     Active Substance: METFORMIN HYDROCHLORIDE
     Indication: Glucose tolerance impaired
     Dosage: UNK
     Dates: end: 202307
  7. DOXOPEG [Concomitant]
     Indication: Breast cancer
     Dosage: UNK
     Dates: start: 2014
  8. EUTIROXIN [Concomitant]
     Dosage: 100 UNK, QD
  9. EZOLIUM [Concomitant]
     Dosage: 40 MILLIGRAM, QD
  10. DEBLAX [Concomitant]
     Dosage: UNK UNK, QMO
  11. VILDAGLIPTIN [Concomitant]
     Active Substance: VILDAGLIPTIN
     Dosage: 50 MILLIGRAM, QD
  12. Gabex [Concomitant]
     Dosage: UNK UNK, QD
  13. ZALDIAR [Concomitant]
     Active Substance: ACETAMINOPHEN\TRAMADOL HYDROCHLORIDE
     Indication: Pain
     Dosage: UNK UNK, AS NECESSARY
  14. PANTOPRAZOLE SODIUM [Concomitant]
     Active Substance: PANTOPRAZOLE SODIUM
     Dosage: UNK UNK, QD
  15. PREGABALIN [Concomitant]
     Active Substance: PREGABALIN
  16. ZOLEDRONIC ACID [Concomitant]
     Active Substance: ZOLEDRONIC ACID
     Dosage: UNK UNK, Q4WK
  17. VITAMIN C [Concomitant]
     Active Substance: ASCORBIC ACID
     Dosage: UNK UNK, Q4WK
     Route: 042
  18. FERINJECT [Concomitant]
     Active Substance: FERRIC CARBOXYMALTOSE
  19. CHONDROITIN SULFATE (BOVINE)\GLUCOSAMINE HYDROCHLORIDE [Concomitant]
     Active Substance: CHONDROITIN SULFATE (BOVINE)\GLUCOSAMINE HYDROCHLORIDE
  20. Ultraflex [Concomitant]
  21. CALCIUM [Concomitant]
     Active Substance: CALCIUM
  22. MAGNESIUM CITRATE [Concomitant]
     Active Substance: MAGNESIUM CITRATE
     Indication: Immune system disorder

REACTIONS (21)
  - Blood calcium decreased [Unknown]
  - Blood sodium decreased [Unknown]
  - Blood magnesium decreased [Unknown]
  - Blood potassium decreased [Unknown]
  - Blood chloride decreased [Unknown]
  - Diarrhoea [Unknown]
  - Dehydration [Unknown]
  - Gastroenteritis rotavirus [Recovered/Resolved]
  - Cerebrovascular accident [Recovered/Resolved]
  - Metastases to central nervous system [Unknown]
  - Metastases to lung [Unknown]
  - Metastases to liver [Unknown]
  - Blood triglycerides increased [Not Recovered/Not Resolved]
  - Fatigue [Not Recovered/Not Resolved]
  - Anaemia [Not Recovered/Not Resolved]
  - Constipation [Not Recovered/Not Resolved]
  - Off label use [Unknown]
  - Red blood cell count decreased [Unknown]
  - Haemoglobin decreased [Unknown]
  - White blood cell count decreased [Unknown]
  - Gastritis [Not Recovered/Not Resolved]

NARRATIVE: CASE EVENT DATE: 20190801
